FAERS Safety Report 5588032-1 (Version None)
Quarter: 2008Q1

REPORT INFORMATION
  Report Type: 
  Country: None (occurrence: None)
  Receive Date: 20080111
  Receipt Date: 20071116
  Transmission Date: 20080703
  Serious: Yes (Other)
  Sender: FDA-Public Use
  Company Number: US-PFIZER INC-2007071145

PATIENT
  Sex: Female
  Weight: 52.2 kg

DRUGS (8)
  1. LYRICA [Suspect]
     Indication: CERVICOGENIC HEADACHE
     Route: 048
  2. LYRICA [Suspect]
     Indication: MIGRAINE
  3. KLONOPIN [Suspect]
  4. SINEQUAN [Suspect]
  5. SYNTHROID [Concomitant]
     Indication: GOITRE
  6. BOTOX [Concomitant]
  7. ISOMETHEPTENE [Concomitant]
  8. VITAMINS [Concomitant]

REACTIONS (4)
  - DISTURBANCE IN ATTENTION [None]
  - FATIGUE [None]
  - MEMORY IMPAIRMENT [None]
  - VERTEBRAL INJURY [None]
